FAERS Safety Report 8061897-X (Version None)
Quarter: 2012Q1

REPORT INFORMATION
  Report Type: 
  Country: None (occurrence: None)
  Receive Date: 20120117
  Receipt Date: 20120104
  Transmission Date: 20120608
  Serious: Yes (Other)
  Sender: FDA-Public Use
  Company Number: 2011P1009571

PATIENT
  Age: 36 Year
  Sex: Female
  Weight: 86.1834 kg

DRUGS (12)
  1. OXYCONTIN [Concomitant]
  2. PRILOSEC [Concomitant]
  3. PROPRANOLOL [Concomitant]
  4. DILANTIN [Concomitant]
  5. XANAX [Concomitant]
  6. FENTANYL-75 [Suspect]
     Indication: INTERVERTEBRAL DISC DEGENERATION
     Dosage: 1 PATCH; Q73H;TDER 1 PATCH;Q48H;TDER
     Route: 062
     Dates: start: 20110101
  7. FENTANYL-75 [Suspect]
     Indication: NEUROPATHY PERIPHERAL
     Dosage: 1 PATCH; Q73H;TDER 1 PATCH;Q48H;TDER
     Route: 062
     Dates: start: 20110101
  8. FENTANYL-75 [Suspect]
     Indication: FIBROMYALGIA
     Dosage: 1 PATCH; Q73H;TDER 1 PATCH;Q48H;TDER
     Route: 062
     Dates: start: 20110101
  9. FENTANYL-75 [Suspect]
     Indication: INTERVERTEBRAL DISC DEGENERATION
     Dosage: 1 PATCH; Q73H;TDER 1 PATCH;Q48H;TDER
     Route: 062
     Dates: start: 20090101, end: 20110101
  10. FENTANYL-75 [Suspect]
     Indication: NEUROPATHY PERIPHERAL
     Dosage: 1 PATCH; Q73H;TDER 1 PATCH;Q48H;TDER
     Route: 062
     Dates: start: 20090101, end: 20110101
  11. FENTANYL-75 [Suspect]
     Indication: FIBROMYALGIA
     Dosage: 1 PATCH; Q73H;TDER 1 PATCH;Q48H;TDER
     Route: 062
     Dates: start: 20090101, end: 20110101
  12. PHENERGAN [Concomitant]

REACTIONS (16)
  - DIARRHOEA [None]
  - APPLICATION SITE SCAB [None]
  - PRODUCT SUBSTITUTION ISSUE [None]
  - NAUSEA [None]
  - HEADACHE [None]
  - APPLICATION SITE BURN [None]
  - NODULE [None]
  - PAIN [None]
  - HYPERSENSITIVITY [None]
  - APPLICATION SITE DISCOMFORT [None]
  - PRURITUS [None]
  - APPLICATION SITE SCAR [None]
  - RASH [None]
  - SWOLLEN TONGUE [None]
  - TONGUE EXFOLIATION [None]
  - APPLICATION SITE VESICLES [None]
